FAERS Safety Report 18322767 (Version 2)
Quarter: 2020Q4

REPORT INFORMATION
  Report Type: Spontaneous
  Country: IT (occurrence: IT)
  Receive Date: 20200929
  Receipt Date: 20201130
  Transmission Date: 20210113
  Serious: Yes (Hospitalization)
  Sender: FDA-Public Use
  Company Number: IT-ACCORD-202974

PATIENT
  Age: 12 Year
  Sex: Male
  Weight: 35 kg

DRUGS (1)
  1. SERTRALINE [Suspect]
     Active Substance: SERTRALINE HYDROCHLORIDE
     Indication: PHOBIA
     Route: 048
     Dates: start: 20200916, end: 20200916

REACTIONS (3)
  - Nausea [Recovered/Resolved]
  - Salivary hypersecretion [Recovered/Resolved]
  - Duplicate therapy error [Recovered/Resolved]

NARRATIVE: CASE EVENT DATE: 20200916
